FAERS Safety Report 9132263 (Version 2)
Quarter: 2013Q2

REPORT INFORMATION
  Report Type: Spontaneous
  Country: BR (occurrence: BR)
  Receive Date: 20130301
  Receipt Date: 20130419
  Transmission Date: 20140414
  Serious: Yes (Other)
  Sender: FDA-Public Use
  Company Number: BR-ABBOTT-13P-020-1044843-00

PATIENT
  Age: 0 Year
  Sex: Male

DRUGS (4)
  1. DEPAKENE [Suspect]
     Indication: PRODUCT USED FOR UNKNOWN INDICATION
     Route: 048
     Dates: start: 20130128
  2. GARDENAL [Concomitant]
     Indication: CEREBROVASCULAR ACCIDENT
     Dates: start: 201211
  3. GARDENAL [Concomitant]
  4. INSULIN [Concomitant]
     Indication: PRODUCT USED FOR UNKNOWN INDICATION
     Dosage: HALF SYRINGE

REACTIONS (9)
  - Feeding disorder of infancy or early childhood [Not Recovered/Not Resolved]
  - Coma [Not Recovered/Not Resolved]
  - Convulsion [Recovered/Resolved]
  - Cerebral haemorrhage [Recovered/Resolved]
  - Somnolence [Not Recovered/Not Resolved]
  - Hypersomnia [Not Recovered/Not Resolved]
  - Vomiting [Unknown]
  - Somnolence [Unknown]
  - Insomnia [Unknown]
